FAERS Safety Report 7231163-0 (Version None)
Quarter: 2011Q1

REPORT INFORMATION
  Report Type: 
  Country: None (occurrence: None)
  Receive Date: 20110118
  Receipt Date: 20110103
  Transmission Date: 20110831
  Serious: Yes (Death)
  Sender: FDA-Public Use
  Company Number: A0785170A

PATIENT
  Age: 49 Year
  Sex: Male
  Weight: 140 kg

DRUGS (10)
  1. ARTHROTEC [Concomitant]
  2. LORTAB [Concomitant]
  3. TRICOR [Concomitant]
  4. VALIUM [Concomitant]
  5. INSULIN [Concomitant]
  6. DARVOCET [Concomitant]
  7. ATENOLOL [Concomitant]
  8. RANITIDINE [Concomitant]
  9. PRINIVIL [Concomitant]
  10. AVANDIA [Suspect]
     Indication: DIABETES MELLITUS
     Route: 048

REACTIONS (1)
  - DEATH [None]
